FAERS Safety Report 6389656-4 (Version None)
Quarter: 2009Q4

REPORT INFORMATION
  Report Type: 
  Country: None (occurrence: None)
  Receive Date: 20091006
  Receipt Date: 20090925
  Transmission Date: 20100525
  Serious: Yes (Other)
  Sender: FDA-Public Use
  Company Number: JP-BRISTOL-MYERS SQUIBB COMPANY-14779235

PATIENT
  Age: 62 Year
  Sex: Male

DRUGS (2)
  1. ABILIFY [Suspect]
     Route: 048
     Dates: end: 20090907
  2. RISPERDAL [Concomitant]
     Dates: end: 20090907

REACTIONS (2)
  - BLOOD GLUCOSE DECREASED [None]
  - PNEUMONIA [None]
